FAERS Safety Report 22754295 (Version 2)
Quarter: 2024Q1

REPORT INFORMATION
  Report Type: Spontaneous
  Country: ES (occurrence: ES)
  Receive Date: 20230727
  Receipt Date: 20240308
  Transmission Date: 20240410
  Serious: Yes (Hospitalization)
  Sender: FDA-Public Use
  Company Number: None

PATIENT
  Age: 79 Year
  Sex: Male

DRUGS (11)
  1. VALGANCICLOVIR [Suspect]
     Active Substance: VALGANCICLOVIR
     Indication: Antiviral prophylaxis
     Dosage: DOSAGE TEXT: 450MG/48H, VALGANCICLOVIR (2861A)
     Route: 048
     Dates: start: 20230428
  2. DOXAZOSIN [Concomitant]
     Active Substance: DOXAZOSIN MESYLATE
     Indication: Hypertension
     Dosage: DOSAGE TEXT: DOXAZOSINA (2387A), 1 MG EVERY 12 HOURS IF BP }140/90 DESPITE REGULAR MEDICATION, DI...
     Route: 065
  3. PNEUMOVAX 23 [Concomitant]
     Active Substance: PNEUMOCOCCAL VACCINE, POLYVALENT 23
     Indication: Immunisation
     Dosage: DOSAGE TEXT: PNEUMOVAX 23,
     Route: 065
     Dates: start: 20230525, end: 20230525
  4. ENGERIX- B [Concomitant]
     Indication: Immunisation
     Dosage: DOSAGE TEXT: STRENGTH : 20 MICROGRAMS/1 ML
     Dates: start: 20230525, end: 20230525
  5. SHINGRIX [Suspect]
     Active Substance: RECOMBINANT VARICELLA ZOSTER VIRUS (VZV) GLYCOPROTEIN E
     Indication: Herpes zoster immunisation
     Dosage: DOSAGE TEXT: DOSE 1, SHINGRIX POWDER AND SUSPENSION FOR INJECTABLE SUSPENSION, 10 VIALS (POWDER) ...
     Route: 065
     Dates: start: 20230627, end: 20230627
  6. DAPAGLIFLOZIN [Concomitant]
     Active Substance: DAPAGLIFLOZIN
     Indication: Type 2 diabetes mellitus
     Dosage: DOSAGE TEXT: DAPAGLIFLOZINA (8615A)
     Route: 065
  7. AMLODIPINE BESYLATE [Concomitant]
     Active Substance: AMLODIPINE BESYLATE
     Indication: Hypertension
     Dosage: DOSAGE TEXT: AMLODIPINO (2503A)
     Route: 065
  8. TAVNEOS [Suspect]
     Active Substance: AVACOPAN
     Indication: Anti-neutrophil cytoplasmic antibody positive vasculitis
     Dosage: DOSAGE TEXT: 180 CAPSULES
     Route: 065
     Dates: start: 20230331
  9. RITUXIMAB [Suspect]
     Active Substance: RITUXIMAB
     Indication: Anti-neutrophil cytoplasmic antibody positive vasculitis
     Dosage: DOSAGE TEXT: RITUXIMAB (2814A)
     Route: 065
     Dates: start: 20230331
  10. VILDAGLIPTIN [Concomitant]
     Active Substance: VILDAGLIPTIN
     Indication: Type 2 diabetes mellitus
     Dosage: DOSAGE TEXT: VILDAGLIPTINA (8106A)
     Route: 065
  11. SULFAMETHOXAZOLE\TRIMETHOPRIM [Suspect]
     Active Substance: SULFAMETHOXAZOLE\TRIMETHOPRIM
     Indication: Antibiotic prophylaxis
     Dosage: DOSAGE TEXT: L-X-V,  STRENGTH : 80 MG/400 MG TABLETS, 20 TABLETS
     Route: 065
     Dates: start: 20230405

REACTIONS (3)
  - Febrile neutropenia [Recovered/Resolved]
  - Bicytopenia [Recovering/Resolving]
  - Anaemia [Recovering/Resolving]

NARRATIVE: CASE EVENT DATE: 20230628
